FAERS Safety Report 9729785 (Version 1)
Quarter: 2013Q4

REPORT INFORMATION
  Report Type: Spontaneous
  Country: US (occurrence: US)
  Receive Date: 20131204
  Receipt Date: 20131204
  Transmission Date: 20140711
  Serious: No
  Sender: FDA-Public Use
  Company Number: US-GILEAD-2009-0022476

PATIENT
  Sex: Female
  Weight: 84.37 kg

DRUGS (13)
  1. LETAIRIS [Suspect]
     Indication: PULMONARY ARTERIAL HYPERTENSION
     Route: 048
     Dates: start: 20090121
  2. AMLODIPINE [Concomitant]
  3. CRESTOR [Concomitant]
  4. SOTALOL [Concomitant]
  5. SPIRONOLACTONE [Concomitant]
  6. METOLAZONE [Concomitant]
  7. FUROSEMIDE [Concomitant]
  8. CARBIDOPA-LEVO [Concomitant]
  9. CELEBREX [Concomitant]
  10. EVISTA [Concomitant]
  11. ADVIL [Concomitant]
  12. MAGNESIUM OXIDE [Concomitant]
  13. POTASSIUM [Concomitant]

REACTIONS (1)
  - Dry mouth [Unknown]
